FAERS Safety Report 11919755 (Version 2)
Quarter: 2016Q1

REPORT INFORMATION
  Report Type: Spontaneous
  Country: US (occurrence: US)
  Receive Date: 20160115
  Receipt Date: 20160202
  Transmission Date: 20160526
  Serious: No
  Sender: FDA-Public Use
  Company Number: US-ASTRAZENECA-2016SE01332

PATIENT
  Age: 22569 Day
  Sex: Female

DRUGS (1)
  1. BRILINTA [Suspect]
     Active Substance: TICAGRELOR
     Indication: ACUTE CORONARY SYNDROME
     Route: 048

REACTIONS (9)
  - Gait disturbance [Unknown]
  - Diabetes mellitus [Unknown]
  - Feeling abnormal [Unknown]
  - Fatigue [Unknown]
  - Speech disorder [Unknown]
  - Blood glucose increased [Unknown]
  - Malaise [Unknown]
  - Adverse event [Unknown]
  - Vertigo [Unknown]

NARRATIVE: CASE EVENT DATE: 20151217
